FAERS Safety Report 20126756 (Version 1)
Quarter: 2021Q4

REPORT INFORMATION
  Report Type: Report from Study
  Country: US (occurrence: US)
  Receive Date: 20211129
  Receipt Date: 20211129
  Transmission Date: 20220303
  Serious: Yes (Death, Hospitalization)
  Sender: FDA-Public Use
  Company Number: US-BAYER-2021A252619

PATIENT
  Age: 65 Year
  Sex: Male

DRUGS (1)
  1. STIVARGA [Suspect]
     Active Substance: REGORAFENIB
     Indication: Bile duct cancer
     Dosage: DAILY DOSE 80 MG FOR 7 DAYS, TAKE AT THE SAME TIME EACH DAY WITH A LOW FAT BREAKFAST
     Route: 048
     Dates: start: 202110

REACTIONS (3)
  - Sepsis [Fatal]
  - Infected neoplasm [Fatal]
  - Off label use [None]

NARRATIVE: CASE EVENT DATE: 20211001
